FAERS Safety Report 6871123-2 (Version None)
Quarter: 2010Q3

REPORT INFORMATION
  Report Type: 
  Country: None (occurrence: None)
  Receive Date: 20100723
  Receipt Date: 20100712
  Transmission Date: 20110219
  Serious: Yes (Hospitalization, Other)
  Sender: FDA-Public Use
  Company Number: US-PFIZER INC-2010039533

PATIENT
  Sex: Female

DRUGS (3)
  1. CHANTIX [Suspect]
     Indication: SMOKING CESSATION THERAPY
     Dosage: STARTER PACK AND 1MG CONTINUATION PACK, UNK
     Dates: start: 20080221, end: 20080401
  2. ATENOLOL [Concomitant]
     Indication: HYPERTENSION
     Dosage: UNK
     Dates: start: 20030101
  3. FUROSEMIDE [Concomitant]
     Indication: FLUID RETENTION
     Dosage: UNK
     Dates: start: 20030101

REACTIONS (5)
  - ANXIETY [None]
  - INTENTIONAL OVERDOSE [None]
  - MAJOR DEPRESSION [None]
  - MENTAL DISORDER [None]
  - SUICIDE ATTEMPT [None]
